FAERS Safety Report 5044321-0 (Version None)
Quarter: 2006Q2

REPORT INFORMATION
  Report Type: 
  Country: None (occurrence: None)
  Receive Date: 20060629
  Receipt Date: 20060615
  Transmission Date: 20061013
  Serious: Yes (Other)
  Sender: FDA-Public Use
  Company Number: 2006064613

PATIENT
  Age: 82 Year
  Sex: Female
  Weight: 65 kg

DRUGS (3)
  1. LYRICA [Suspect]
     Indication: NEURALGIA
     Dosage: 300 MG (150 MG, 2 IN 1 D), ORAL
     Route: 048
     Dates: start: 20060411, end: 20060502
  2. NEURONTIN [Suspect]
     Indication: NEURALGIA
     Dosage: 100 MG, ORAL
     Route: 048
     Dates: start: 20011113
  3. ALCOHOL   (ETHANOL) [Suspect]

REACTIONS (3)
  - ALCOHOL USE [None]
  - DRUG INTERACTION [None]
  - SYNCOPE [None]
